FAERS Safety Report 10478433 (Version 1)
Quarter: 2014Q3

REPORT INFORMATION
  Report Type: Spontaneous
  Country: DE (occurrence: DE)
  Receive Date: 20140926
  Receipt Date: 20140926
  Transmission Date: 20150326
  Serious: Yes (Disabling)
  Sender: FDA-Public Use
  Company Number: DE-PFIZER INC-2014260651

PATIENT
  Age: 53 Year
  Sex: Male
  Weight: 90 kg

DRUGS (7)
  1. RAMILICH 5 [Concomitant]
     Dosage: UNK
     Route: 048
     Dates: start: 20120601
  2. AMINEURIN 25 [Concomitant]
     Dosage: 25 UNK, UNK
     Route: 048
     Dates: start: 20140819
  3. EXJADE [Concomitant]
     Active Substance: DEFERASIROX
     Dosage: UNK
     Route: 048
     Dates: start: 20130708
  4. FENTANYL SANDOZ [Concomitant]
     Active Substance: FENTANYL
     Dosage: 75 UG/H
     Route: 062
     Dates: start: 20120319
  5. LYRICA [Suspect]
     Active Substance: PREGABALIN
     Dosage: 100 UNK, UNK
     Route: 048
     Dates: start: 20140819
  6. SPIRIVA [Concomitant]
     Active Substance: TIOTROPIUM BROMIDE MONOHYDRATE
     Dosage: UNK
     Route: 055
     Dates: start: 20140524
  7. THEOPHYLLIN AL [Concomitant]
     Dosage: 300 SUSTAINED RELEASE
     Route: 048
     Dates: start: 20120215

REACTIONS (2)
  - Dysgeusia [Not Recovered/Not Resolved]
  - Tongue coated [Not Recovered/Not Resolved]

NARRATIVE: CASE EVENT DATE: 20140819
